FAERS Safety Report 5356100-5 (Version None)
Quarter: 2007Q2

REPORT INFORMATION
  Report Type: 
  Country: None (occurrence: None)
  Receive Date: 20070613
  Receipt Date: 20070531
  Transmission Date: 20071010
  Serious: Yes (Hospitalization)
  Sender: FDA-Public Use
  Company Number: US-ELI_LILLY_AND_COMPANY-US200705007827

PATIENT
  Age: 58 Year
  Sex: Female

DRUGS (18)
  1. CYMBALTA [Suspect]
     Dosage: 60 MG, UNK
  2. ASPIRIN [Concomitant]
  3. LIPITOR [Concomitant]
  4. GENTAMICIN [Concomitant]
  5. HEPARIN [Concomitant]
  6. LABETALOL HCL [Concomitant]
  7. NITROGLYCERIN [Concomitant]
  8. PROTONIX [Concomitant]
  9. ZOSYN [Concomitant]
  10. LYRICA [Concomitant]
  11. SENOKOT [Concomitant]
  12. SPIRONOLACTONE [Concomitant]
  13. TRAZODONE HCL [Concomitant]
  14. BISACODYL [Concomitant]
  15. BENADRYL [Concomitant]
  16. POTASSIUM ACETATE [Concomitant]
  17. REGLAN [Concomitant]
  18. MORPHINE [Concomitant]

REACTIONS (1)
  - PAIN [None]
